FAERS Safety Report 9559883 (Version 1)
Quarter: 2013Q3

REPORT INFORMATION
  Report Type: Spontaneous
  Country: US (occurrence: None)
  Receive Date: 20130924
  Receipt Date: 20130924
  Transmission Date: 20140515
  Serious: Yes (Other)
  Sender: FDA-Public Use
  Company Number: AUR-APL-2013-07804

PATIENT
  Age: 70 Year
  Sex: Female

DRUGS (1)
  1. METFORMIN [Suspect]
     Indication: PRODUCT USED FOR UNKNOWN INDICATION

REACTIONS (9)
  - Injury [None]
  - Foreign body aspiration [None]
  - Foreign body reaction [None]
  - Excessive granulation tissue [None]
  - Bronchial wall thickening [None]
  - Post procedural complication [None]
  - Bronchostenosis [None]
  - Inflammation [None]
  - Obstruction [None]
